FAERS Safety Report 6506405-7 (Version None)
Quarter: 2009Q4

REPORT INFORMATION
  Report Type: 
  Country: None (occurrence: None)
  Receive Date: 20091219
  Receipt Date: 20091208
  Transmission Date: 20100525
  Serious: Yes (Other)
  Sender: FDA-Public Use
  Company Number: BR-PFIZER INC-2009297800

PATIENT
  Age: 60 Year
  Sex: Male
  Weight: 78 kg

DRUGS (11)
  1. CHAMPIX [Suspect]
     Indication: TOBACCO USER
     Dosage: 0.5 MG, 1X/DAY
     Route: 048
     Dates: start: 20091001
  2. CHAMPIX [Interacting]
     Dosage: 0.5 MG, 2X/DAY
     Route: 048
  3. CHAMPIX [Interacting]
     Dosage: 1 MG, 2X/DAY
     Route: 048
     Dates: end: 20091115
  4. LEXOTAN [Interacting]
     Indication: RELAXATION THERAPY
     Dosage: UNK
     Dates: end: 20091101
  5. LASIX [Concomitant]
     Dosage: UNK
     Route: 048
     Dates: start: 20050101
  6. RYTMONORM [Concomitant]
     Dosage: UNK
     Route: 048
     Dates: start: 20050101
  7. SIMVASTATIN [Concomitant]
     Dosage: UNK
     Route: 048
     Dates: start: 20050101
  8. PLAVIX [Concomitant]
     Dosage: UNK
     Route: 048
     Dates: start: 20050101
  9. ALDACTONE [Concomitant]
     Dosage: UNK
     Route: 048
     Dates: start: 20050101
  10. OMEPRAZOLE [Concomitant]
     Dosage: UNK
     Route: 048
     Dates: start: 20050101
  11. AAS [Concomitant]
     Dosage: 100MG
     Route: 048
     Dates: start: 20050101

REACTIONS (5)
  - ABDOMINAL PAIN UPPER [None]
  - DRUG INTERACTION [None]
  - HALLUCINATION [None]
  - NAUSEA [None]
  - POISONING [None]
